FAERS Safety Report 5666419-6 (Version None)
Quarter: 2008Q1

REPORT INFORMATION
  Report Type: 
  Country: None (occurrence: None)
  Receive Date: 20080314
  Receipt Date: 20071217
  Transmission Date: 20080703
  Serious: No
  Sender: FDA-Public Use
  Company Number: US-ABBOTT-07P-163-0430621-00

PATIENT
  Sex: Female

DRUGS (2)
  1. HUMIRA [Suspect]
     Indication: RHEUMATOID ARTHRITIS
     Dosage: PFS
     Route: 058
     Dates: start: 20050101, end: 20071217
  2. HUMIRA [Suspect]
     Dosage: PEN
     Route: 058
     Dates: start: 20071217

REACTIONS (1)
  - ACCIDENTAL EXPOSURE [None]
